FAERS Safety Report 13054566 (Version 3)
Quarter: 2017Q1

REPORT INFORMATION
  Report Type: Spontaneous
  Country: CH (occurrence: GR)
  Receive Date: 20161222
  Receipt Date: 20170306
  Transmission Date: 20170428
  Serious: Yes (Other)
  Sender: FDA-Public Use
  Company Number: CH-LPDUSPRD-20161126

PATIENT
  Age: 50 Year
  Sex: Female

DRUGS (1)
  1. FERINJECT [Suspect]
     Active Substance: FERRIC CARBOXYMALTOSE
     Dosage: 1 G IN 250 ML SALINE
     Route: 041
     Dates: start: 201611, end: 201611

REACTIONS (3)
  - Flushing [Unknown]
  - Restlessness [Unknown]
  - Tachycardia [Unknown]

NARRATIVE: CASE EVENT DATE: 201611
